FAERS Safety Report 5079285-7 (Version None)
Quarter: 2006Q3

REPORT INFORMATION
  Report Type: 
  Country: None (occurrence: None)
  Receive Date: 20060720
  Receipt Date: 20060512
  Transmission Date: 20061208
  Serious: Yes (Hospitalization, Other)
  Sender: FDA-Public Use
  Company Number: 2005088344

PATIENT
  Age: 46 Year
  Sex: Female
  Weight: 61.6892 kg

DRUGS (1)
  1. CELEBREX [Suspect]
     Indication: ARTHRALGIA
     Dates: start: 19970101

REACTIONS (4)
  - CHEST PAIN [None]
  - DEPRESSION [None]
  - DYSTONIA [None]
  - MYOCARDIAL INFARCTION [None]
